FAERS Safety Report 6864997 (Version 6)
Quarter: 2013Q4

REPORT INFORMATION
  Report Type: Report from Study
  Country: SE (occurrence: SE)
  Receive Date: 20081223
  Receipt Date: 20131028
  Transmission Date: 20140711
  Serious: Yes (Hospitalization, Other)
  Sender: FDA-Public Use
  Company Number: SE-JNJFOC-20081204377

PATIENT
  Sex: Female
  Weight: 58 kg

DRUGS (2)
  1. INFLIXIMAB [Suspect]
     Indication: COLITIS ULCERATIVE
     Route: 042
     Dates: start: 20081215, end: 20081215
  2. INFLIXIMAB [Suspect]
     Indication: COLITIS ULCERATIVE
     Route: 042
     Dates: start: 20081125

REACTIONS (5)
  - Dyspnoea [Recovered/Resolved]
  - Colitis ulcerative [Recovered/Resolved]
  - Flushing [Recovered/Resolved]
  - Tinnitus [Recovered/Resolved]
  - Infusion related reaction [Recovered/Resolved]
